FAERS Safety Report 13388976 (Version 1)
Quarter: 2017Q1

REPORT INFORMATION
  Report Type: Report from Study
  Country: CZ (occurrence: CZ)
  Receive Date: 20170330
  Receipt Date: 20170330
  Transmission Date: 20170429
  Serious: Yes (Hospitalization)
  Sender: FDA-Public Use
  Company Number: CZ-TEVA-755403ISR

PATIENT
  Age: 78 Year
  Sex: Female

DRUGS (16)
  1. LORADUR MITE [Concomitant]
     Indication: HYPERTENSION
  2. PREDNISONE. [Suspect]
     Active Substance: PREDNISONE
     Indication: B-CELL LYMPHOMA
     Dosage: LAST DOSE PRIOR SAE 10-FEB -2014
     Route: 048
     Dates: end: 20131114
  3. ZOFRAN [Concomitant]
     Active Substance: ONDANSETRON HYDROCHLORIDE
     Indication: PROPHYLAXIS OF NAUSEA AND VOMITING
     Dates: start: 20140205, end: 20140205
  4. DEGAN [Concomitant]
     Active Substance: METOCLOPRAMIDE HYDROCHLORIDE
     Indication: PROPHYLAXIS OF NAUSEA AND VOMITING
     Dates: start: 20140206, end: 20140210
  5. KALNORMIN [Concomitant]
     Active Substance: POTASSIUM CHLORIDE
     Indication: HYPOKALAEMIA
  6. ZEFFIX [Concomitant]
     Active Substance: LAMIVUDINE
  7. ZARZIO [Concomitant]
     Active Substance: FILGRASTIM
     Dates: start: 20140213, end: 20140215
  8. ZOLPIDEM [Concomitant]
     Active Substance: ZOLPIDEM\ZOLPIDEM TARTRATE
     Indication: INSOMNIA
     Dates: start: 20131203, end: 20140307
  9. PARACETAMOL [Concomitant]
     Active Substance: ACETAMINOPHEN
     Indication: HYPERTENSION
  10. NITRESAN [Concomitant]
     Indication: HYPERTENSION
  11. ZARZIO [Concomitant]
     Active Substance: FILGRASTIM
     Dates: start: 20140123, end: 20140125
  12. HELICID [Concomitant]
     Indication: PROPHYLAXIS AGAINST GASTROINTESTINAL ULCER
     Dates: start: 20140206, end: 20140210
  13. DOXORUBICIN [Suspect]
     Active Substance: DOXORUBICIN
     Indication: B-CELL LYMPHOMA
     Dosage: LAST DOSE PRIOR SAE IS 5-FEB-2014
     Route: 042
     Dates: start: 20131114
  14. VINCRISTINE [Suspect]
     Active Substance: VINCRISTINE
     Indication: B-CELL LYMPHOMA
     Dosage: LAST DOSE PRIOR SAE 5-FEB -2014 (IV PUSH)
     Dates: end: 20141114
  15. RITUXIMAB [Suspect]
     Active Substance: RITUXIMAB
     Dosage: RECENT DOSE ON 5-2-2014
     Route: 042
     Dates: end: 20131114
  16. CYCLOPHOSPHAMIDE. [Suspect]
     Active Substance: CYCLOPHOSPHAMIDE
     Dosage: LAST DOSE PRIOR SAE IS 5-FEB-2014
     Route: 042
     Dates: start: 20131114

REACTIONS (1)
  - Deep vein thrombosis [Recovered/Resolved]

NARRATIVE: CASE EVENT DATE: 20140222
